FAERS Safety Report 7100201-8 (Version None)
Quarter: 2010Q4

REPORT INFORMATION
  Report Type: 
  Country: None (occurrence: None)
  Receive Date: 20101112
  Receipt Date: 20101108
  Transmission Date: 20110411
  Serious: Yes (Hospitalization)
  Sender: FDA-Public Use
  Company Number: BR-PFIZER INC-2010142575

PATIENT
  Age: 82 Year
  Sex: Female

DRUGS (3)
  1. LIPITOR [Suspect]
     Indication: BLOOD TRIGLYCERIDES ABNORMAL
     Dosage: 20 MG, 1X/DAY
     Route: 048
     Dates: start: 20100701
  2. RIVOTRIL [Concomitant]
     Indication: SLEEP DISORDER
     Dosage: UNK
  3. CENTRUM [Concomitant]
     Dosage: UNK

REACTIONS (2)
  - FALL [None]
  - FEMUR FRACTURE [None]
